FAERS Safety Report 13883099 (Version 2)
Quarter: 2017Q3

REPORT INFORMATION
  Report Type: Spontaneous
  Country: US (occurrence: US)
  Receive Date: 20170818
  Receipt Date: 20170821
  Transmission Date: 20171127
  Serious: Yes (Other)
  Sender: FDA-Public Use
  Company Number: US-MALLINCKRODT-T201703196

PATIENT
  Age: 73 Year
  Sex: Female

DRUGS (9)
  1. H.P. ACTHAR [Suspect]
     Active Substance: CORTICOTROPIN
     Indication: GLOMERULONEPHRITIS MEMBRANOUS
     Dosage: 0.5 ML, 2 TIMES A WEEK FOR 1 WEEK, THEN INCREASE TO 1ML 2 TIMES A WEEK THEREAFTER
     Route: 058
     Dates: start: 20170628
  2. H.P. ACTHAR [Suspect]
     Active Substance: CORTICOTROPIN
     Indication: NEPHROTIC SYNDROME
     Dosage: 80 UNITS/ML, 2 TIMES A WEEK
     Dates: start: 20170629
  3. H.P. ACTHAR [Suspect]
     Active Substance: CORTICOTROPIN
     Indication: GLOMERULONEPHRITIS MEMBRANOUS
     Dosage: 0.5 ML, 2 TIMES A WEEK FOR 1 WEEK, THEN INCREASE TO 1ML 2 TIMES A WEEK THEREAFTER
     Route: 058
     Dates: start: 20170629
  4. XARELTO [Concomitant]
     Active Substance: RIVAROXABAN
     Indication: PRODUCT USED FOR UNKNOWN INDICATION
     Dosage: 20 MG, UNK
  5. H.P. ACTHAR [Suspect]
     Active Substance: CORTICOTROPIN
     Indication: PROTEINURIA
     Dosage: 0.5 ML, 2 TIMES A WEEK FOR 1 WEEK, THEN INCREASE TO 1ML 2 TIMES A WEEK THEREAFTER
     Route: 058
     Dates: start: 20170626
  6. H.P. ACTHAR [Suspect]
     Active Substance: CORTICOTROPIN
     Indication: FOCAL SEGMENTAL GLOMERULOSCLEROSIS
  7. MIRTAZAPINE. [Concomitant]
     Active Substance: MIRTAZAPINE
     Indication: PRODUCT USED FOR UNKNOWN INDICATION
     Dosage: 15 MG, UNK
  8. LISINOPRIL H [Concomitant]
     Indication: PRODUCT USED FOR UNKNOWN INDICATION
     Dosage: 10-12.5 M
  9. LISINOPRIL. [Concomitant]
     Active Substance: LISINOPRIL
     Indication: PRODUCT USED FOR UNKNOWN INDICATION
     Dosage: 20 MG, UNK

REACTIONS (14)
  - Hypoaesthesia oral [Unknown]
  - Osteoporosis [Unknown]
  - Compression fracture [Unknown]
  - Erythema [Not Recovered/Not Resolved]
  - Injection site discolouration [Not Recovered/Not Resolved]
  - Injection site pruritus [Not Recovered/Not Resolved]
  - Injection site paraesthesia [Not Recovered/Not Resolved]
  - Injection site warmth [Not Recovered/Not Resolved]
  - Injection site pain [Not Recovered/Not Resolved]
  - Malaise [Unknown]
  - Paraesthesia oral [Not Recovered/Not Resolved]
  - Injection site bruising [Recovered/Resolved]
  - Hypersensitivity [Unknown]
  - Rash [Not Recovered/Not Resolved]

NARRATIVE: CASE EVENT DATE: 20170629
